FAERS Safety Report 23493062 (Version 1)
Quarter: 2024Q1

REPORT INFORMATION
  Report Type: Spontaneous
  Country: US (occurrence: US)
  Receive Date: 20240207
  Receipt Date: 20240207
  Transmission Date: 20240409
  Serious: Yes (Death)
  Sender: FDA-Public Use
  Company Number: US-ELI_LILLY_AND_COMPANY-US202402003869

PATIENT
  Age: 69 Year
  Sex: Male

DRUGS (1)
  1. JAYPIRCA [Suspect]
     Active Substance: PIRTOBRUTINIB
     Indication: Lymphoma
     Dosage: 100 MG, UNKNOWN
     Route: 065
     Dates: start: 202312

REACTIONS (1)
  - Malignant neoplasm progression [Fatal]
